FAERS Safety Report 17948996 (Version 1)
Quarter: 2020Q2

REPORT INFORMATION
  Report Type: Spontaneous
  Country: US (occurrence: US)
  Receive Date: 20200625
  Receipt Date: 20200625
  Transmission Date: 20200714
  Serious: No
  Sender: FDA-Public Use
  Company Number: US-ROCHE-2435878

PATIENT
  Sex: Female

DRUGS (1)
  1. KLONOPIN [Suspect]
     Active Substance: CLONAZEPAM
     Indication: ANXIETY
     Route: 065

REACTIONS (6)
  - Nausea [Unknown]
  - Stomatitis [Unknown]
  - Vomiting [Unknown]
  - Vision blurred [Unknown]
  - Cardiac flutter [Unknown]
  - Extra dose administered [Unknown]
